FAERS Safety Report 20470793 (Version 1)
Quarter: 2022Q1

REPORT INFORMATION
  Report Type: Spontaneous
  Country: US (occurrence: US)
  Receive Date: 20220214
  Receipt Date: 20220214
  Transmission Date: 20220423
  Serious: No
  Sender: FDA-Public Use
  Company Number: US-KALA PHARAMACEUTICALS-2021KLA00122

PATIENT
  Age: 43 Year
  Sex: Female
  Weight: 63.492 kg

DRUGS (3)
  1. EYSUVIS [Suspect]
     Active Substance: LOTEPREDNOL ETABONATE
     Indication: Dry eye
     Dosage: UNK
     Route: 047
     Dates: start: 20211129, end: 20211129
  2. CEQUA [Concomitant]
     Active Substance: CYCLOSPORINE
     Dosage: UNK, 2X/DAY
  3. VITAL TEARS [Concomitant]

REACTIONS (3)
  - Ocular hyperaemia [Recovered/Resolved]
  - Eye irritation [Recovered/Resolved]
  - Instillation site pain [Recovered/Resolved]

NARRATIVE: CASE EVENT DATE: 20211129
